FAERS Safety Report 4963307-5 (Version None)
Quarter: 2006Q2

REPORT INFORMATION
  Report Type: 
  Country: None (occurrence: None)
  Receive Date: 20060405
  Receipt Date: 20050418
  Transmission Date: 20061013
  Serious: Yes (Life-Threatening, Other)
  Sender: FDA-Public Use
  Company Number: DE-BRISTOL-MYERS SQUIBB COMPANY-12981486

PATIENT
  Age: 38 Year
  Sex: Female

DRUGS (2)
  1. BONOQ [Suspect]
     Indication: BRONCHITIS
     Route: 048
     Dates: start: 20050325, end: 20050330
  2. KLACID [Suspect]
     Indication: BRONCHITIS
     Dates: start: 20050301, end: 20050101

REACTIONS (6)
  - CAESAREAN SECTION [None]
  - DRUG EXPOSURE DURING PREGNANCY [None]
  - FOETAL DISTRESS SYNDROME [None]
  - NORMAL NEWBORN [None]
  - PREGNANCY [None]
  - PREMATURE SEPARATION OF PLACENTA [None]
